FAERS Safety Report 6618315-5 (Version None)
Quarter: 2010Q1

REPORT INFORMATION
  Report Type: 
  Country: None (occurrence: None)
  Receive Date: 20100308
  Receipt Date: 20100223
  Transmission Date: 20100710
  Serious: No
  Sender: FDA-Public Use
  Company Number: US-B.I. PHARMACEUTICALS,INC./RIDGEFIELD-2010-BP-02247BP

PATIENT
  Sex: Male

DRUGS (4)
  1. MICARDIS [Suspect]
  2. LISINOPRIL [Concomitant]
  3. DIOVAN [Concomitant]
  4. NORVASC [Concomitant]

REACTIONS (1)
  - DRUG INEFFECTIVE [None]
